FAERS Safety Report 13609129 (Version 1)
Quarter: 2017Q2

REPORT INFORMATION
  Report Type: Spontaneous
  Country: US (occurrence: US)
  Receive Date: 20170602
  Receipt Date: 20170602
  Transmission Date: 20170830
  Serious: Yes (Other)
  Sender: FDA-Public Use
  Company Number: US-MALLINCKRODT-T201702269

PATIENT

DRUGS (1)
  1. METHYLIN [Suspect]
     Active Substance: METHYLPHENIDATE HYDROCHLORIDE
     Indication: COGNITIVE DISORDER
     Dosage: 20 MG
     Route: 048

REACTIONS (3)
  - Anxiety [Unknown]
  - Mental impairment [Unknown]
  - Off label use [Unknown]
